FAERS Safety Report 10021059 (Version 3)
Quarter: 2014Q2

REPORT INFORMATION
  Report Type: Report from Study
  Country: CN (occurrence: CN)
  Receive Date: 20140319
  Receipt Date: 20140502
  Transmission Date: 20141212
  Serious: Yes (Hospitalization)
  Sender: FDA-Public Use
  Company Number: CN-ASTELLAS-2014US002703

PATIENT
  Sex: Male

DRUGS (1)
  1. ERLOTINIB [Suspect]
     Indication: NON-SMALL CELL LUNG CANCER
     Route: 048
     Dates: start: 20130805

REACTIONS (4)
  - Pleural effusion [Unknown]
  - Pneumothorax [Recovering/Resolving]
  - Cough [Recovering/Resolving]
  - Asthenia [Unknown]
